FAERS Safety Report 12721609 (Version 1)
Quarter: 2016Q3

REPORT INFORMATION
  Report Type: Other
  Country: US (occurrence: US)
  Receive Date: 20160907
  Receipt Date: 20160907
  Transmission Date: 20161109
  Serious: No
  Sender: FDA-Public Use
  Company Number: US-COL_22222_2016

PATIENT
  Sex: Female

DRUGS (2)
  1. COLGATE TOTAL ADVANCED WHITENING [Suspect]
     Active Substance: SODIUM FLUORIDE\TRICLOSAN
     Indication: PRODUCT USED FOR UNKNOWN INDICATION
     Dosage: A PEA SIZE/ TID OR QID/
     Route: 048
     Dates: start: 2015
  2. COLGATE TOTAL ADVANCED WHITENING [Suspect]
     Active Substance: SODIUM FLUORIDE\TRICLOSAN
     Dosage: A PEA SIZE/ TID OR QID/
     Route: 048
     Dates: end: 201602

REACTIONS (3)
  - Mouth haemorrhage [Recovered/Resolved]
  - Oral discomfort [Recovered/Resolved]
  - Tongue discomfort [Recovered/Resolved]

NARRATIVE: CASE EVENT DATE: 2015
